FAERS Safety Report 23574427 (Version 5)
Quarter: 2024Q2

REPORT INFORMATION
  Report Type: Report from Study
  Country: CA (occurrence: CA)
  Receive Date: 20240228
  Receipt Date: 20240525
  Transmission Date: 20240716
  Serious: Yes (Hospitalization, Other)
  Sender: FDA-Public Use
  Company Number: CA-ABBVIE-5654234

PATIENT
  Age: 78 Year
  Sex: Male

DRUGS (2)
  1. SKYRIZI [Suspect]
     Active Substance: RISANKIZUMAB-RZAA
     Indication: Psoriasis
     Route: 058
  2. SKYRIZI [Suspect]
     Active Substance: RISANKIZUMAB-RZAA
     Indication: Psoriasis
     Route: 058
     Dates: start: 20220401

REACTIONS (7)
  - Myocardial infarction [Unknown]
  - Renal disorder [Unknown]
  - Malaise [Unknown]
  - Urinary incontinence [Recovering/Resolving]
  - Post procedural complication [Recovering/Resolving]
  - Psoriasis [Unknown]
  - Bladder catheter removal [Unknown]

NARRATIVE: CASE EVENT DATE: 20240101
